FAERS Safety Report 15367393 (Version 2)
Quarter: 2018Q4

REPORT INFORMATION
  Report Type: Spontaneous
  Country: JP (occurrence: JP)
  Receive Date: 20180910
  Receipt Date: 20181023
  Transmission Date: 20190204
  Serious: Yes (Hospitalization, Other)
  Sender: FDA-Public Use
  Company Number: JP-ELI_LILLY_AND_COMPANY-JP201809000261

PATIENT
  Age: 72 Year
  Sex: Male
  Weight: 48 kg

DRUGS (2)
  1. PACLITAXEL. [Suspect]
     Active Substance: PACLITAXEL
     Indication: GASTRIC CANCER
     Dosage: UNK UNK, OTHER
     Route: 065
     Dates: start: 20180209, end: 20180508
  2. CYRAMZA [Suspect]
     Active Substance: RAMUCIRUMAB
     Indication: GASTRIC CANCER
     Dosage: UNK UNK, OTHER
     Route: 041
     Dates: start: 20180209, end: 20180508

REACTIONS (2)
  - Malignant neoplasm progression [Unknown]
  - Interstitial lung disease [Recovering/Resolving]

NARRATIVE: CASE EVENT DATE: 2018
